FAERS Safety Report 14703447 (Version 1)
Quarter: 2018Q2

REPORT INFORMATION
  Report Type: Report from Study
  Country: US (occurrence: US)
  Receive Date: 20180402
  Receipt Date: 20180402
  Transmission Date: 20180711
  Serious: Yes (Other)
  Sender: FDA-Public Use
  Company Number: PHEH2018US011304

PATIENT
  Sex: Male

DRUGS (1)
  1. TEGRETOL XR [Suspect]
     Active Substance: CARBAMAZEPINE
     Indication: SEIZURE
     Route: 065

REACTIONS (6)
  - Upper limb fracture [Unknown]
  - Wrist fracture [Unknown]
  - Joint dislocation [Unknown]
  - Blood pressure increased [Unknown]
  - Seizure [Unknown]
  - Blood pressure decreased [Unknown]
